FAERS Safety Report 18086066 (Version 1)
Quarter: 2020Q3

REPORT INFORMATION
  Report Type: Spontaneous
  Country: US (occurrence: US)
  Receive Date: 20200727
  Receipt Date: 20200727
  Transmission Date: 20201103
  Serious: Yes (Hospitalization)
  Sender: FDA-Public Use
  Company Number: None

PATIENT
  Sex: Female

DRUGS (18)
  1. CYCLOBENZAPR [Concomitant]
     Active Substance: CYCLOBENZAPRINE
  2. FLUCONAZOLE. [Concomitant]
     Active Substance: FLUCONAZOLE
  3. HYDROCO/APAP [Concomitant]
     Active Substance: ACETAMINOPHEN\HYDROCODONE
  4. PREDNISONE. [Concomitant]
     Active Substance: PREDNISONE
  5. VALSARTAN. [Concomitant]
     Active Substance: VALSARTAN
  6. ALBUTEROL. [Concomitant]
     Active Substance: ALBUTEROL
  7. AMLODIPINE [Concomitant]
     Active Substance: AMLODIPINE BESYLATE
  8. CARVEDILOL. [Concomitant]
     Active Substance: CARVEDILOL
  9. NYSTATIN. [Concomitant]
     Active Substance: NYSTATIN
  10. TRAZODONE [Concomitant]
     Active Substance: TRAZODONE HYDROCHLORIDE
  11. DOXYCYCL HYC [Concomitant]
  12. CHLORTHALID [Concomitant]
     Active Substance: CHLORTHALIDONE
  13. SPIRONOLACT [Concomitant]
     Active Substance: SPIRONOLACTONE
  14. CAPECITABINE. [Suspect]
     Active Substance: CAPECITABINE
     Indication: CARCINOID TUMOUR
     Dosage: ?          OTHER FREQUENCY:BID FOR 14D Q21D;?
     Route: 048
     Dates: start: 20191008
  15. AMOX/K CLAV [Concomitant]
     Active Substance: AMOXICILLIN\CLAVULANATE POTASSIUM
  16. DEXAMETHASONE. [Concomitant]
     Active Substance: DEXAMETHASONE
  17. GABAPENTIN. [Concomitant]
     Active Substance: GABAPENTIN
  18. PANTOPRAZOLE [Concomitant]
     Active Substance: PANTOPRAZOLE

REACTIONS (2)
  - COVID-19 [None]
  - Therapy interrupted [None]
